FAERS Safety Report 6436432-X (Version None)
Quarter: 2009Q4

REPORT INFORMATION
  Report Type: 
  Country: None (occurrence: None)
  Receive Date: 20091110
  Receipt Date: 20080318
  Transmission Date: 20100525
  Serious: No
  Sender: FDA-Public Use
  Company Number: AEUSA200800065

PATIENT
  Age: 24 Year
  Sex: Female
  Weight: 77.1115 kg

DRUGS (1)
  1. GAMUNEX [Suspect]
     Indication: GUILLAIN-BARRE SYNDROME
     Dosage: 35 GM; QD; IV
     Route: 042
     Dates: start: 20080316, end: 20080619

REACTIONS (1)
  - INJECTION SITE PAIN [None]
